FAERS Safety Report 20023849 (Version 1)
Quarter: 2021Q4

REPORT INFORMATION
  Report Type: Spontaneous
  Country: DE (occurrence: DE)
  Receive Date: 20211102
  Receipt Date: 20211102
  Transmission Date: 20220303
  Serious: Yes (Other)
  Sender: FDA-Public Use
  Company Number: DE-PFIZER INC-202100962743

PATIENT
  Age: 60 Year
  Sex: Male

DRUGS (2)
  1. FLUOROURACIL [Suspect]
     Active Substance: FLUOROURACIL
     Indication: Anal cancer
     Dosage: 1000 MILLIGRAM/SQ. METER, CYCLE (1000 MG/M2/DAY DAYS 1-4 IN THE 1ST AND 5TH WEEKS OF RADIOTHERAPY
  2. MITOMYCIN [Suspect]
     Active Substance: MITOMYCIN
     Indication: Anal cancer
     Dosage: 15 MILLIGRAM/SQ. METER, CYCLE (15 MG/M2 DAYS 1 IN THE 1ST CYCLE)

REACTIONS (1)
  - Skin exfoliation [Unknown]
